FAERS Safety Report 5116902-7 (Version None)
Quarter: 2006Q3

REPORT INFORMATION
  Report Type: 
  Country: None (occurrence: None)
  Receive Date: 20060925
  Receipt Date: 20060912
  Transmission Date: 20061208
  Serious: Yes (Other)
  Sender: FDA-Public Use
  Company Number: B0438831A

PATIENT
  Sex: Male

DRUGS (2)
  1. PAROXETINE HCL [Suspect]
     Indication: DRUG USE FOR UNKNOWN INDICATION
     Dosage: SEE DOSAGE TEXT
     Dates: start: 20020501
  2. ETHANOL [Concomitant]

REACTIONS (11)
  - ALCOHOL USE [None]
  - ANXIETY [None]
  - DRUG DOSE OMISSION [None]
  - HEADACHE [None]
  - HOMICIDE [None]
  - NAUSEA [None]
  - NIGHT SWEATS [None]
  - NIGHTMARE [None]
  - SLEEP WALKING [None]
  - STRABISMUS [None]
  - TREMOR [None]
